FAERS Safety Report 8196729-2 (Version None)
Quarter: 2012Q1

REPORT INFORMATION
  Report Type: 
  Country: None (occurrence: None)
  Receive Date: 20120309
  Receipt Date: 20120305
  Transmission Date: 20120608
  Serious: Yes (Disabling, Other)
  Sender: FDA-Public Use
  Company Number: PHEH2007US02889

PATIENT
  Sex: Female
  Weight: 80.726 kg

DRUGS (18)
  1. RESTORIL [Concomitant]
     Indication: SLEEP DISORDER
     Dosage: 15 MG, QHS
     Route: 048
  2. STEROIDS NOS [Concomitant]
     Dates: start: 20050101
  3. CALCIUM [Concomitant]
  4. AMOXICILLIN [Concomitant]
  5. ORAL CONTRACEPTIVE NOS [Concomitant]
  6. AMBIEN [Concomitant]
  7. MULTIVITAMIN [Concomitant]
  8. XANAX [Concomitant]
     Indication: ANXIETY
     Dosage: 0.5 MG, TID
     Route: 048
  9. METRONIDAZOLE [Concomitant]
  10. PAXIL [Concomitant]
     Indication: DEPRESSION
     Dosage: 20 MG, QD
     Route: 048
  11. VESICARE [Concomitant]
  12. LUPRON [Concomitant]
  13. TAMOXIFEN CITRATE [Concomitant]
     Indication: NEOPLASM MALIGNANT
     Dosage: 20 MG, QD
     Route: 048
  14. WELLBUTRIN [Concomitant]
     Indication: DEPRESSION
     Dosage: 100 MG, TID
     Route: 048
  15. BISPHOSPHONATES [Concomitant]
     Dates: start: 20021101, end: 20050901
  16. ZOMETA [Suspect]
     Indication: METASTASES TO BONE
     Dosage: 4 MG, UNK
     Dates: start: 20021101, end: 20050901
  17. ZOMETA [Suspect]
     Indication: BREAST CANCER METASTATIC
  18. ASPIRIN [Concomitant]

REACTIONS (75)
  - OSTEONECROSIS OF JAW [None]
  - DECREASED INTEREST [None]
  - ORAL PAIN [None]
  - FAT NECROSIS [None]
  - SWEAT GLAND TUMOUR [None]
  - GRANULOMA ANNULARE [None]
  - LYMPHOEDEMA [None]
  - STRESS URINARY INCONTINENCE [None]
  - OEDEMA PERIPHERAL [None]
  - MYALGIA [None]
  - VULVOVAGINAL PRURITUS [None]
  - PAIN IN JAW [None]
  - OSTEOMYELITIS [None]
  - TEMPOROMANDIBULAR JOINT SYNDROME [None]
  - INTERVERTEBRAL DISC DEGENERATION [None]
  - PERIODONTITIS [None]
  - LIPOGRANULOMA [None]
  - CHEST WALL MASS [None]
  - SKIN PAPILLOMA [None]
  - ECCHYMOSIS [None]
  - HEADACHE [None]
  - SKIN HYPERPIGMENTATION [None]
  - URINARY INCONTINENCE [None]
  - TOOTH ABSCESS [None]
  - OROANTRAL FISTULA [None]
  - DEPRESSION [None]
  - LENTIGO [None]
  - VULVOVAGINAL DRYNESS [None]
  - HAEMORRHOIDS [None]
  - GINGIVAL INFECTION [None]
  - POSITRON EMISSION TOMOGRAM ABNORMAL [None]
  - GENERAL PHYSICAL HEALTH DETERIORATION [None]
  - TRISMUS [None]
  - METASTASES TO BONE [None]
  - VIRAL INFECTION [None]
  - COCCYDYNIA [None]
  - SWELLING [None]
  - FATIGUE [None]
  - HYPERCHOLESTEROLAEMIA [None]
  - SINUSITIS [None]
  - ANXIETY [None]
  - PYREXIA [None]
  - INTERVERTEBRAL DISC SPACE NARROWING [None]
  - CEREBRAL SMALL VESSEL ISCHAEMIC DISEASE [None]
  - ARTERIOSCLEROSIS [None]
  - ACTINIC KERATOSIS [None]
  - ARTHRALGIA [None]
  - HOT FLUSH [None]
  - SINUS HEADACHE [None]
  - BONE DISORDER [None]
  - BONE LOSS [None]
  - SPINAL OSTEOARTHRITIS [None]
  - BONE NEOPLASM MALIGNANT [None]
  - SEBORRHOEIC KERATOSIS [None]
  - DYSGEUSIA [None]
  - ORAL DISCHARGE [None]
  - LOOSE TOOTH [None]
  - PERIODONTAL DISEASE [None]
  - PAIN [None]
  - DENTAL FISTULA [None]
  - ATELECTASIS [None]
  - ACTINOMYCOSIS [None]
  - METASTASES TO CENTRAL NERVOUS SYSTEM [None]
  - HAEMANGIOMA [None]
  - VITAMIN B12 DEFICIENCY [None]
  - SINUS BRADYCARDIA [None]
  - BIOPSY BONE [None]
  - OSTEITIS [None]
  - TOOTH IMPACTED [None]
  - SINUS CONGESTION [None]
  - UPPER RESPIRATORY TRACT INFECTION [None]
  - HAEMATOCHEZIA [None]
  - ERYTHEMA [None]
  - ANAEMIA [None]
  - ABDOMINAL PAIN [None]
